FAERS Safety Report 8123913-6 (Version None)
Quarter: 2012Q1

REPORT INFORMATION
  Report Type: 
  Country: None (occurrence: None)
  Receive Date: 20120209
  Receipt Date: 20120127
  Transmission Date: 20120608
  Serious: Yes (Hospitalization)
  Sender: FDA-Public Use
  Company Number: AU-PAR PHARMACEUTICAL, INC-2012SCPR004084

PATIENT

DRUGS (6)
  1. BACLOFEN [Suspect]
     Dosage: 80 MG,  OVER 90 MIN
     Route: 065
  2. BACLOFEN [Suspect]
     Indication: ALCOHOLISM
     Dosage: 10 MG, TID
     Route: 065
  3. VENLAFAXINE HCL EXTENDED-RELEASE [Suspect]
     Indication: PRODUCT USED FOR UNKNOWN INDICATION
     Dosage: 225 MG, / DAY
     Route: 065
  4. METHAMPHETAMINE HYDROCHLORIDE [Concomitant]
     Indication: PRODUCT USED FOR UNKNOWN INDICATION
     Dosage: UNK UNK FORTNIGHTLY
     Route: 065
  5. BUPRENORPHINE [Suspect]
     Indication: PRODUCT USED FOR UNKNOWN INDICATION
     Dosage: UNK, UNKNOWN
     Route: 065
  6. DIAZEPAM [Suspect]
     Indication: PRODUCT USED FOR UNKNOWN INDICATION
     Dosage: UNK, UNKNOWN
     Route: 065

REACTIONS (6)
  - HYPERHIDROSIS [None]
  - LOSS OF CONSCIOUSNESS [None]
  - DISORIENTATION [None]
  - MULTIPLE DRUG OVERDOSE [None]
  - DIZZINESS [None]
  - ATAXIA [None]
